FAERS Safety Report 14473981 (Version 1)
Quarter: 2018Q1

REPORT INFORMATION
  Report Type: Report from Study
  Country: AR (occurrence: AR)
  Receive Date: 20180201
  Receipt Date: 20180201
  Transmission Date: 20180509
  Serious: Yes (Other)
  Sender: FDA-Public Use
  Company Number: PHHY2017AR177134

PATIENT
  Age: 87 Year
  Sex: Male

DRUGS (3)
  1. LEVOTHYROXINE. [Concomitant]
     Active Substance: LEVOTHYROXINE
     Indication: PRODUCT USED FOR UNKNOWN INDICATION
     Route: 065
  2. ENTRESTO [Suspect]
     Active Substance: SACUBITRIL\VALSARTAN
     Indication: ARRHYTHMIA
     Dosage: 50 MG, QD
     Route: 065
     Dates: start: 201710, end: 201711
  3. ENTRESTO [Suspect]
     Active Substance: SACUBITRIL\VALSARTAN
     Indication: CARDIAC FAILURE CHRONIC
     Dosage: 50 MG, Q12H
     Route: 065

REACTIONS (6)
  - Underdose [Not Recovered/Not Resolved]
  - Malaise [Recovering/Resolving]
  - Cardiac disorder [Unknown]
  - Product use in unapproved indication [Unknown]
  - Agitation [Not Recovered/Not Resolved]
  - Inappropriate schedule of drug administration [Not Recovered/Not Resolved]

NARRATIVE: CASE EVENT DATE: 201710
